FAERS Safety Report 7900914-1 (Version None)
Quarter: 2011Q4

REPORT INFORMATION
  Report Type: 
  Country: None (occurrence: None)
  Receive Date: 20111108
  Receipt Date: 20111025
  Transmission Date: 20120403
  Serious: Yes (Other)
  Sender: FDA-Public Use
  Company Number: CA-ELI_LILLY_AND_COMPANY-CA201110006604

PATIENT
  Sex: Male

DRUGS (3)
  1. ZYPREXA [Suspect]
     Dosage: 10 MG, EACH EVENING
  2. ZYPREXA [Suspect]
     Dosage: 20 MG, EACH EVENING
  3. ZYPREXA [Suspect]
     Dosage: 5 MG, EACH EVENING

REACTIONS (12)
  - DIABETIC KETOACIDOSIS [None]
  - HYPERGLYCAEMIA [None]
  - INSOMNIA [None]
  - CHILLS [None]
  - DIABETES MELLITUS [None]
  - SCREAMING [None]
  - SALIVARY HYPERSECRETION [None]
  - CONFUSIONAL STATE [None]
  - RENAL FAILURE [None]
  - PANCREATITIS [None]
  - MUSCLE SPASTICITY [None]
  - BULIMIA NERVOSA [None]
